FAERS Safety Report 19992341 (Version 2)
Quarter: 2022Q2

REPORT INFORMATION
  Report Type: Spontaneous
  Country: TR (occurrence: TR)
  Receive Date: 20211026
  Receipt Date: 20220608
  Transmission Date: 20220721
  Serious: Yes (Hospitalization, Other)
  Sender: FDA-Public Use
  Company Number: TR-VALIDUS PHARMACEUTICALS LLC-TR-VDP-2021-005720

PATIENT

DRUGS (1)
  1. LASIX [Suspect]
     Active Substance: FUROSEMIDE
     Indication: Cardiac failure
     Dosage: 2 DF, QD
     Route: 048

REACTIONS (9)
  - Urinary incontinence [Not Recovered/Not Resolved]
  - Cognitive disorder [Recovered/Resolved]
  - Coordination abnormal [Recovered/Resolved]
  - Hallucination [Recovered/Resolved]
  - Blood sodium decreased [Recovered/Resolved]
  - Vomiting [Unknown]
  - Constipation [Not Recovered/Not Resolved]
  - Muscle fatigue [Not Recovered/Not Resolved]
  - Near death experience [Recovered/Resolved]
